FAERS Safety Report 10944972 (Version 3)
Quarter: 2015Q2

REPORT INFORMATION
  Report Type: Spontaneous
  Country: FR (occurrence: FR)
  Receive Date: 20150323
  Receipt Date: 20150505
  Transmission Date: 20150821
  Serious: Yes (Other)
  Sender: FDA-Public Use
  Company Number: FR-TEVA-548017ISR

PATIENT
  Age: 66 Year
  Sex: Male
  Weight: 60 kg

DRUGS (2)
  1. IRBESARTAN /HYDROCHLOROTHIAZIDE TEVA 150 MG/12.5 MG [Suspect]
     Active Substance: HYDROCHLOROTHIAZIDE\IRBESARTAN
     Indication: HYPERTENSION
     Dosage: 1 DOSAGE FORMS DAILY; 150 MG/12.5 MG
     Route: 048
     Dates: start: 20150225, end: 20150315
  2. ASPEGIC 100 [Concomitant]

REACTIONS (12)
  - Malaise [Recovered/Resolved]
  - Vomiting [Recovered/Resolved]
  - Hyperhidrosis [Recovered/Resolved]
  - Nausea [Recovered/Resolved]
  - Decreased appetite [Recovering/Resolving]
  - Dyspnoea [Recovered/Resolved]
  - Seizure [Recovered/Resolved]
  - Hypertension [Recovering/Resolving]
  - Asthenia [Recovering/Resolving]
  - Asthenia [Not Recovered/Not Resolved]
  - Dizziness [Recovering/Resolving]
  - Weight decreased [Recovering/Resolving]

NARRATIVE: CASE EVENT DATE: 201502
